FAERS Safety Report 20520774 (Version 1)
Quarter: 2022Q1

REPORT INFORMATION
  Report Type: Spontaneous
  Country: AU (occurrence: AU)
  Receive Date: 20220225
  Receipt Date: 20220225
  Transmission Date: 20220423
  Serious: Yes (Hospitalization, Other)
  Sender: FDA-Public Use
  Company Number: AU-PFIZER INC-202200223122

PATIENT
  Age: 42 Year
  Sex: Male
  Weight: 82 kg

DRUGS (14)
  1. CLOZAPINE [Suspect]
     Active Substance: CLOZAPINE
     Dosage: UNK
  2. ATORVASTATIN CALCIUM [Suspect]
     Active Substance: ATORVASTATIN CALCIUM
     Dosage: IN THE MORNING
     Route: 048
  3. THYROXINE [Suspect]
     Active Substance: LEVOTHYROXINE
     Dosage: 100MG ORAL MONDAY TO FRIDAY, 75MG ORAL ON SATURDAY AND SUNDAY
     Route: 048
  4. OLANZAPINE [Suspect]
     Active Substance: OLANZAPINE
     Dosage: 5MG IN THE MORNING, 5MG AT 5PM, 25MG AT NIGHT
     Route: 048
  5. VALPROATE SODIUM [Suspect]
     Active Substance: VALPROATE SODIUM
     Dosage: 1200 MG, 2X/DAY
     Route: 048
  6. ESCITALOPRAM [Suspect]
     Active Substance: ESCITALOPRAM OXALATE
     Dosage: IN THE MORNING
     Route: 048
  7. RABEPRAZOLE SODIUM [Suspect]
     Active Substance: RABEPRAZOLE SODIUM
     Dosage: IN THE MORNING
     Route: 048
  8. ASPIRIN [Suspect]
     Active Substance: ASPIRIN
     Dosage: IN THE MORNING
     Route: 048
  9. ALLOPURINOL [Suspect]
     Active Substance: ALLOPURINOL
     Dosage: 200MG IN THE MORNING, 300MG AT NIGHT
     Route: 048
  10. MIDAZOLAM [Concomitant]
     Active Substance: MIDAZOLAM
     Dosage: 1:48PM
  11. FENTANYL [Concomitant]
     Active Substance: FENTANYL
     Dosage: AT 1:49PM
  12. VERAPAMIL [Concomitant]
     Active Substance: VERAPAMIL HYDROCHLORIDE
     Dosage: 3 MG
  13. HEPARIN [Concomitant]
     Active Substance: HEPARIN SODIUM
     Dosage: AT 2:01PM
  14. ROSUVASTATIN [Concomitant]
     Active Substance: ROSUVASTATIN
     Dosage: 10 MG
     Route: 048

REACTIONS (18)
  - Acute myocardial infarction [Unknown]
  - Thrombocytopenia [Unknown]
  - Sinus rhythm [Unknown]
  - Defect conduction intraventricular [Unknown]
  - Chest pain [Unknown]
  - Electrocardiogram T wave abnormal [Unknown]
  - Palpitations [Unknown]
  - Tachycardia [Unknown]
  - Electrocardiogram abnormal [Unknown]
  - Troponin increased [Unknown]
  - Coronary artery disease [Unknown]
  - Troponin T increased [Unknown]
  - Blood urea decreased [Unknown]
  - Platelet count decreased [Unknown]
  - Red cell distribution width increased [Unknown]
  - Activated partial thromboplastin time prolonged [Unknown]
  - Dyspnoea [Unknown]
  - Anxiety [Unknown]
